FAERS Safety Report 8866074 (Version 4)
Quarter: 2013Q1

REPORT INFORMATION
  Report Type: Spontaneous
  Country: DE (occurrence: SE)
  Receive Date: 20121025
  Receipt Date: 20130313
  Transmission Date: 20140127
  Serious: Yes (Other)
  Sender: FDA-Public Use
  Company Number: SE-FRI-1000039761

PATIENT
  Sex: Male
  Weight: 62.2 kg

DRUGS (3)
  1. ROFLUMILAST [Suspect]
     Indication: CHRONIC OBSTRUCTIVE PULMONARY DISEASE
     Dosage: 500 MCG
     Route: 048
     Dates: start: 20110419, end: 20110503
  2. COMBIVENT [Concomitant]
  3. XANOR [Concomitant]

REACTIONS (10)
  - Condition aggravated [Unknown]
  - Dyspnoea [Unknown]
  - Aneurysm [Unknown]
  - Feeling cold [Unknown]
  - Weight decreased [Unknown]
  - Chest pain [Unknown]
  - Decreased appetite [Unknown]
  - Sleep disorder [Unknown]
  - Abdominal pain [Unknown]
  - Fatigue [Unknown]
